FAERS Safety Report 7810844-1 (Version None)
Quarter: 2011Q4

REPORT INFORMATION
  Report Type: 
  Country: None (occurrence: None)
  Receive Date: 20111011
  Receipt Date: 20110930
  Transmission Date: 20120403
  Serious: Yes (Life-Threatening)
  Sender: FDA-Public Use
  Company Number: JP-20110024

PATIENT
  Age: 72 Year
  Sex: Male

DRUGS (3)
  1. (NICORANDIL) (NICORANDIL) [Concomitant]
  2. OXILAN-300 [Suspect]
     Indication: ANGIOGRAM
     Dosage: 6 ML (6 ML, 1 IN 1 D) INTRA-ARTERIAL
     Route: 013
     Dates: start: 20110614, end: 20110614
  3. HEPARIN [Concomitant]

REACTIONS (4)
  - CORONARY ARTERY STENOSIS [None]
  - RENAL FAILURE [None]
  - ACUTE MYOCARDIAL INFARCTION [None]
  - ANAPHYLACTIC SHOCK [None]
